FAERS Safety Report 8577998-3 (Version None)
Quarter: 2012Q3

REPORT INFORMATION
  Report Type: 
  Country: None (occurrence: None)
  Receive Date: 20120725
  Receipt Date: 20120713
  Transmission Date: 20120928
  Serious: Yes (Death, Other)
  Sender: FDA-Public Use
  Company Number: AUR-APL-2012-03081

PATIENT
  Age: 52 Year
  Sex: Female

DRUGS (8)
  1. OLANZAPINE [Suspect]
     Indication: PRODUCT USED FOR UNKNOWN INDICATION
  2. IBUPROFEN [Suspect]
     Indication: PRODUCT USED FOR UNKNOWN INDICATION
  3. DOXEPIN HCL [Suspect]
     Indication: MENTAL DISORDER
     Dosage: 25 MG, DAILY, UNK
  4. TILIDINE (TILIDINE) [Suspect]
     Indication: PRODUCT USED FOR UNKNOWN INDICATION
  5. AMLODIPINE [Suspect]
     Indication: PRODUCT USED FOR UNKNOWN INDICATION
     Dosage: 2.5 MG, UNK; 7.5 MG, UNK; 10 MG, UNK;
  6. METOPROLOL TARTRATE [Suspect]
     Indication: PRODUCT USED FOR UNKNOWN INDICATION
  7. DIAZEPAM [Suspect]
     Indication: PRODUCT USED FOR UNKNOWN INDICATION
  8. PROTHIPENDYL (PROTHIPENDYL) [Suspect]
     Indication: PRODUCT USED FOR UNKNOWN INDICATION
     Dosage: DOUBLE DOSE AT NIGHT, UNK

REACTIONS (10)
  - TOXICITY TO VARIOUS AGENTS [None]
  - LETHARGY [None]
  - SOMNOLENCE [None]
  - PAIN [None]
  - GAIT DISTURBANCE [None]
  - DROOLING [None]
  - DRUG INTERACTION [None]
  - INSOMNIA [None]
  - POLYMEDICATION [None]
  - NERVOUS SYSTEM DISORDER [None]
